FAERS Safety Report 25331840 (Version 6)
Quarter: 2025Q3

REPORT INFORMATION
  Report Type: Report from Study
  Country: US (occurrence: US)
  Receive Date: 20250519
  Receipt Date: 20250811
  Transmission Date: 20251020
  Serious: Yes (Other)
  Sender: TRAVERE THERAPEUTICS
  Company Number: US-TRAVERE-2025TVT00712

PATIENT
  Age: 59 Year
  Sex: Female

DRUGS (6)
  1. FILSPARI [Suspect]
     Active Substance: SPARSENTAN
     Indication: IgA nephropathy
     Route: 048
     Dates: start: 20250514
  2. FILSPARI [Suspect]
     Active Substance: SPARSENTAN
     Route: 048
     Dates: end: 20250528
  3. FILSPARI [Suspect]
     Active Substance: SPARSENTAN
     Route: 048
     Dates: start: 20250529, end: 20250604
  4. FILSPARI [Suspect]
     Active Substance: SPARSENTAN
     Route: 048
     Dates: start: 20250605
  5. ATENOLOL [Concomitant]
     Active Substance: ATENOLOL
  6. ARANESP [Concomitant]
     Active Substance: DARBEPOETIN ALFA

REACTIONS (7)
  - Cataract operation [Unknown]
  - Rash [Unknown]
  - Condition aggravated [None]
  - Peripheral swelling [Unknown]
  - Full blood count abnormal [Recovering/Resolving]
  - Onychomycosis [Unknown]
  - Symptom recurrence [Unknown]

NARRATIVE: CASE EVENT DATE: 20250514
